FAERS Safety Report 9995473 (Version 1)
Quarter: 2014Q1

REPORT INFORMATION
  Report Type: Spontaneous
  Country: US (occurrence: None)
  Receive Date: 20140307
  Receipt Date: 20140307
  Transmission Date: 20141002
  Serious: Yes (Other)
  Sender: FDA-Public Use
  Company Number: None

PATIENT
  Age: 85 Year
  Sex: Female
  Weight: 68.04 kg

DRUGS (19)
  1. TRIAMCINOLONE [Suspect]
     Indication: PRURITUS
     Dosage: TWICE DAILY AM AND PM ON SKIN
     Route: 062
     Dates: start: 20130604, end: 20130608
  2. TRIAMCINOLONE [Suspect]
     Indication: RASH
     Dosage: TWICE DAILY AM AND PM ON SKIN
     Route: 062
     Dates: start: 20130604, end: 20130608
  3. CDP/AMTRIP [Concomitant]
  4. DILTIAZEM [Concomitant]
  5. TRIAM/HCTZ [Concomitant]
  6. PANTRAPAZOLE [Concomitant]
  7. ZETIA [Concomitant]
  8. DOXYCYCLINE [Concomitant]
  9. ZYRTEC [Concomitant]
  10. WALKER [Concomitant]
  11. CENTRUM SILVER [Concomitant]
  12. OSCAL CALCIUM + D3 [Concomitant]
  13. B6 [Concomitant]
  14. B12 [Concomitant]
  15. ASPIRIN [Concomitant]
  16. FOLIC ACID [Concomitant]
  17. HYPO TEARS [Concomitant]
  18. STOOL SOFTENER [Concomitant]
  19. SENOKOT [Concomitant]

REACTIONS (1)
  - Hair growth abnormal [None]
